FAERS Safety Report 7638028 (Version 2)
Quarter: 2014Q4

REPORT INFORMATION
  Report Type: Spontaneous
  Country: FR (occurrence: FR)
  Receive Date: 20101022
  Receipt Date: 20141229
  Transmission Date: 20150529
  Serious: Yes (Hospitalization, Other)
  Sender: FDA-Public Use
  Company Number: FR-ELI_LILLY_AND_COMPANY-FR200911005732

PATIENT
  Age: 69 Year
  Sex: Female

DRUGS (5)
  1. ZYPREXA [Suspect]
     Active Substance: OLANZAPINE
     Indication: PSYCHOTIC DISORDER
     Dosage: 5 MG, DAILY (1/D)
     Route: 048
     Dates: start: 20091026, end: 20091029
  2. LEPTICUR [Concomitant]
     Active Substance: TROPATEPINE HYDROCHLORIDE
     Dosage: 10 MG, DAILY (1/D)
     Route: 048
     Dates: start: 20091026
  3. PARKINES [Concomitant]
     Dosage: UNK, UNKNOWN
     Route: 065
  4. OLMETEC [Suspect]
     Active Substance: OLMESARTAN MEDOXOMIL
     Indication: HYPERTENSION
     Dosage: 10 MG, DAILY (1/D)
     Route: 048
     Dates: end: 20091029
  5. LEXOMIL [Concomitant]
     Active Substance: BROMAZEPAM
     Dosage: UNK, UNKNOWN
     Route: 048

REACTIONS (4)
  - Acute kidney injury [Recovering/Resolving]
  - Drug-induced liver injury [Unknown]
  - Colitis ischaemic [Not Recovered/Not Resolved]
  - Rhabdomyolysis [Recovering/Resolving]

NARRATIVE: CASE EVENT DATE: 20091029
